FAERS Safety Report 25953926 (Version 1)
Quarter: 2025Q4

REPORT INFORMATION
  Report Type: Spontaneous
  Country: US (occurrence: US)
  Receive Date: 20251023
  Receipt Date: 20251023
  Transmission Date: 20260118
  Serious: Yes (Life-Threatening, Hospitalization, Other)
  Sender: AMGEN
  Company Number: US-AMGEN-USASP2025208022

PATIENT
  Sex: Male

DRUGS (1)
  1. IMDELLTRA [Suspect]
     Active Substance: TARLATAMAB-DLLE
     Indication: Small cell lung cancer extensive stage
     Dosage: UNK, PER LABELING
     Route: 065

REACTIONS (6)
  - Chronic respiratory failure [Unknown]
  - Cytokine release syndrome [Not Recovered/Not Resolved]
  - HIV infection [Unknown]
  - Hepatitis C [Unknown]
  - Shock [Unknown]
  - Chronic obstructive pulmonary disease [Unknown]
